FAERS Safety Report 6102225-6 (Version None)
Quarter: 2009Q1

REPORT INFORMATION
  Report Type: 
  Country: None (occurrence: None)
  Receive Date: 20090304
  Receipt Date: 20090225
  Transmission Date: 20090719
  Serious: Yes (Other)
  Sender: FDA-Public Use
  Company Number: US-ELI_LILLY_AND_COMPANY-US200902007160

PATIENT
  Sex: Male

DRUGS (5)
  1. CYMBALTA [Suspect]
     Indication: DIABETIC NEUROPATHY
     Dosage: 60 MG, DAILY (1/D)
     Dates: start: 20070101
  2. INSULIN [Concomitant]
  3. ANTIHYPERTENSIVES [Concomitant]
     Indication: HYPERTENSION
  4. ANTIBIOTICS [Concomitant]
     Indication: CHOLANGITIS
  5. LIPITOR [Concomitant]

REACTIONS (1)
  - CARDIAC OPERATION [None]
